FAERS Safety Report 8472250-9 (Version None)
Quarter: 2012Q2

REPORT INFORMATION
  Report Type: 
  Country: None (occurrence: None)
  Receive Date: 20120627
  Receipt Date: 20120619
  Transmission Date: 20120825
  Serious: Yes (Other)
  Sender: FDA-Public Use
  Company Number: US-JNJFOC-20120611523

PATIENT

DRUGS (7)
  1. VINCRISTINE [Suspect]
     Indication: MULTIPLE MYELOMA
     Dosage: FOR 4-6 CYCLES (2 CYCLES BEYOND BEST RESPONSE)
     Route: 042
  2. LENALIDOMIDE [Suspect]
     Indication: MULTIPLE MYELOMA
     Dosage: MAINTAINANCE PHASE; DAYS 1-21
     Route: 065
  3. LENALIDOMIDE [Suspect]
     Dosage: INCREASING DOSE LEVELS (5MG, 10MG, 15MG MTD 10MG), DAYS 1-21
     Route: 065
  4. DEXAMETHASONE [Suspect]
     Indication: MULTIPLE MYELOMA
     Dosage: ON DAYS 1-4
     Route: 065
  5. PREDNISONE TAB [Suspect]
     Indication: MULTIPLE MYELOMA
     Dosage: MAINTAINANCE PHASE
     Route: 065
  6. ASPIRIN [Concomitant]
     Indication: THROMBOSIS PROPHYLAXIS
     Route: 065
  7. DOXORUBICIN HCL [Suspect]
     Indication: MULTIPLE MYELOMA
     Dosage: ON DAY 1
     Route: 042

REACTIONS (3)
  - HAEMATOTOXICITY [None]
  - INFECTION [None]
  - EMBOLISM VENOUS [None]
